FAERS Safety Report 6186918-0 (Version None)
Quarter: 2009Q2

REPORT INFORMATION
  Report Type: 
  Country: None (occurrence: None)
  Receive Date: 20090512
  Receipt Date: 20090507
  Transmission Date: 20091009
  Serious: Yes (Hospitalization, Other)
  Sender: FDA-Public Use
  Company Number: IR-ROXANE LABORATORIES, INC.-2009-RO-00466RO

PATIENT
  Age: 12 Year
  Sex: Female

DRUGS (10)
  1. LAMOTRIGINE [Suspect]
     Indication: GRAND MAL CONVULSION
     Dosage: 25MG
  2. LAMOTRIGINE [Suspect]
     Dosage: 100MG
  3. DIAZEPAM [Suspect]
     Indication: GRAND MAL CONVULSION
     Route: 042
  4. VALPROATE SODIUM [Suspect]
     Indication: GRAND MAL CONVULSION
  5. ANTIBIOTICS [Concomitant]
  6. FLUID THERAPY [Concomitant]
  7. IMMUNE GLOBULIN INTRAVENOUS (HUMAN) [Concomitant]
     Indication: TOXIC EPIDERMAL NECROLYSIS
     Route: 042
  8. EYE DROPS [Concomitant]
  9. ALBUMIN (HUMAN) [Concomitant]
  10. MOUTH WASH [Concomitant]

REACTIONS (6)
  - ANAEMIA [None]
  - CONFUSIONAL STATE [None]
  - DIARRHOEA [None]
  - HYPOTENSION [None]
  - NEUTROPENIA [None]
  - TOXIC EPIDERMAL NECROLYSIS [None]
